FAERS Safety Report 7494795-0 (Version None)
Quarter: 2011Q2

REPORT INFORMATION
  Report Type: 
  Country: None (occurrence: None)
  Receive Date: 20110520
  Receipt Date: 20110422
  Transmission Date: 20111010
  Serious: Yes (Hospitalization)
  Sender: FDA-Public Use
  Company Number: A0924236A

PATIENT
  Age: 75 Year
  Sex: Female

DRUGS (2)
  1. OTHER MEDICATIONS [Concomitant]
  2. TYKERB [Suspect]
     Indication: BRAIN NEOPLASM
     Dosage: 1250MG PER DAY
     Route: 048
     Dates: start: 20110415, end: 20110509

REACTIONS (3)
  - DIARRHOEA [None]
  - HEART RATE INCREASED [None]
  - VOMITING [None]
